FAERS Safety Report 10249296 (Version 1)
Quarter: 2014Q2

REPORT INFORMATION
  Report Type: Spontaneous
  Country: US (occurrence: None)
  Receive Date: 20140618
  Receipt Date: 20140618
  Transmission Date: 20141212
  Serious: No
  Sender: FDA-Public Use
  Company Number: None

PATIENT
  Age: 04 Year
  Sex: 0

DRUGS (1)
  1. BENZOCAINE [Suspect]
     Dosage: 1, TID, SPRAY

REACTIONS (1)
  - Methaemoglobinaemia [None]
